FAERS Safety Report 8309701-6 (Version None)
Quarter: 2012Q2

REPORT INFORMATION
  Report Type: 
  Country: None (occurrence: None)
  Receive Date: 20120423
  Receipt Date: 20120412
  Transmission Date: 20120825
  Serious: Yes (Death, Hospitalization)
  Sender: FDA-Public Use
  Company Number: 132689

PATIENT
  Age: 27 Year
  Sex: Female

DRUGS (2)
  1. HALOPERIDOL DECANOATE [Suspect]
     Indication: DEPRESSION
     Dosage: 5 MG IM
     Route: 030
  2. LORAZEPAM [Suspect]
     Indication: DEPRESSION
     Dosage: 2 MG IM
     Route: 030

REACTIONS (9)
  - STUPOR [None]
  - FALL [None]
  - PULMONARY EMBOLISM [None]
  - HALLUCINATION, AUDITORY [None]
  - BLOOD GLUCOSE INCREASED [None]
  - UNRESPONSIVE TO STIMULI [None]
  - CATATONIA [None]
  - BLOOD PRESSURE DECREASED [None]
  - CARDIO-RESPIRATORY ARREST [None]
